FAERS Safety Report 25159534 (Version 2)
Quarter: 2025Q2

REPORT INFORMATION
  Report Type: Spontaneous
  Country: CN (occurrence: CN)
  Receive Date: 20250404
  Receipt Date: 20250608
  Transmission Date: 20250716
  Serious: Yes (Other)
  Sender: COHERUS
  Company Number: CN-SHANGHAI JUNSHI BIOSCIENCES CO., LTD.-CN2025013551

PATIENT

DRUGS (3)
  1. TORIPALIMAB [Suspect]
     Active Substance: TORIPALIMAB
     Indication: Small cell lung cancer
     Route: 041
     Dates: start: 20250308, end: 20250308
  2. ETOPOSIDE [Suspect]
     Active Substance: ETOPOSIDE
     Indication: Small cell lung cancer
     Dosage: 125 MG (D1-D3, QD)
     Route: 041
     Dates: start: 20250309, end: 20250311
  3. LOBAPLATIN [Suspect]
     Active Substance: LOBAPLATIN
     Indication: Small cell lung cancer
     Route: 041
     Dates: start: 20250309, end: 20250309

REACTIONS (1)
  - Myelosuppression [Recovered/Resolved]

NARRATIVE: CASE EVENT DATE: 20250323
